FAERS Safety Report 6873210-1 (Version None)
Quarter: 2010Q3

REPORT INFORMATION
  Report Type: 
  Country: None (occurrence: None)
  Receive Date: 20100723
  Receipt Date: 20081209
  Transmission Date: 20110219
  Serious: No
  Sender: FDA-Public Use
  Company Number: US-PFIZER INC-2008156622

PATIENT
  Sex: Male
  Weight: 92.986 kg

DRUGS (2)
  1. CHANTIX [Suspect]
     Indication: SMOKING CESSATION THERAPY
     Dosage: 0.5 MG, 1X/DAY
     Dates: start: 20081101
  2. BUPRENORPHINE HCL AND NALOXONE HCL [Concomitant]
     Indication: DRUG DEPENDENCE

REACTIONS (3)
  - NAUSEA [None]
  - PALPITATIONS [None]
  - VOMITING [None]
